FAERS Safety Report 7463367-6 (Version None)
Quarter: 2011Q2

REPORT INFORMATION
  Report Type: 
  Country: None (occurrence: None)
  Receive Date: 20110506
  Receipt Date: 20101021
  Transmission Date: 20111010
  Serious: Yes (Hospitalization)
  Sender: FDA-Public Use
  Company Number: A0889289A

PATIENT
  Age: 54 Year
  Sex: Male

DRUGS (1)
  1. AVANDIA [Suspect]
     Indication: DIABETES MELLITUS
     Dosage: 8MG PER DAY
     Route: 048
     Dates: start: 20080407, end: 20090113

REACTIONS (7)
  - HEADACHE [None]
  - MUSCULAR WEAKNESS [None]
  - NECK PAIN [None]
  - CARDIOVASCULAR DISORDER [None]
  - PAIN [None]
  - ARTHRALGIA [None]
  - ANGINA PECTORIS [None]
